FAERS Safety Report 14838372 (Version 1)
Quarter: 2018Q2

REPORT INFORMATION
  Report Type: Spontaneous
  Country: GB (occurrence: GB)
  Receive Date: 20180502
  Receipt Date: 20180502
  Transmission Date: 20180711
  Serious: Yes (Other)
  Sender: FDA-Public Use
  Company Number: PHHY2018GB077014

PATIENT
  Age: 20 Year
  Sex: Female
  Weight: 68.48 kg

DRUGS (1)
  1. METRONIDAZOLE. [Suspect]
     Active Substance: METRONIDAZOLE
     Indication: BACTERIAL INFECTION
     Dosage: 1000 MG, QD, AFTER FOOD
     Route: 048
     Dates: start: 20180209

REACTIONS (4)
  - Noninfective gingivitis [Unknown]
  - Gingival discolouration [Unknown]
  - Gingival pain [Unknown]
  - Gingival erythema [Unknown]

NARRATIVE: CASE EVENT DATE: 20180210
